FAERS Safety Report 23501860 (Version 1)
Quarter: 2024Q1

REPORT INFORMATION
  Report Type: Spontaneous
  Country: JP (occurrence: JP)
  Receive Date: 20240208
  Receipt Date: 20240208
  Transmission Date: 20240410
  Serious: Yes (Other)
  Sender: FDA-Public Use
  Company Number: JP-PFIZER INC-PV202400018251

PATIENT
  Age: 7 Decade
  Sex: Male

DRUGS (2)
  1. INLYTA [Suspect]
     Active Substance: AXITINIB
  2. BAVENCIO [Concomitant]
     Active Substance: AVELUMAB

REACTIONS (1)
  - Platelet count decreased [Recovered/Resolved]
